FAERS Safety Report 8329587-3 (Version None)
Quarter: 2012Q2

REPORT INFORMATION
  Report Type: 
  Country: None (occurrence: None)
  Receive Date: 20120502
  Receipt Date: 20120419
  Transmission Date: 20120825
  Serious: Yes (Hospitalization)
  Sender: FDA-Public Use
  Company Number: PHHY2012DE034005

PATIENT
  Sex: Female
  Weight: 66 kg

DRUGS (5)
  1. VESICARE [Concomitant]
     Indication: NEUROGENIC BLADDER
     Dosage: 1 DF, QD
     Route: 048
     Dates: start: 20111115
  2. GABAPENTIN [Concomitant]
     Indication: TREMOR
     Dosage: 1 DF, TID
     Route: 048
     Dates: start: 20110815
  3. IBUPROFEN [Concomitant]
     Indication: BACK PAIN
     Dosage: 1 DF, PRN
  4. SILODOSIN [Concomitant]
     Indication: NEUROGENIC BLADDER
     Dosage: 1 DF, QD
     Route: 048
     Dates: start: 20111115
  5. GILENYA [Suspect]
     Dosage: 0.5 MG, QD
     Route: 048
     Dates: start: 20111219

REACTIONS (1)
  - PULMONARY EMBOLISM [None]
